FAERS Safety Report 4518980-2 (Version None)
Quarter: 2004Q4

REPORT INFORMATION
  Report Type: 
  Country: None (occurrence: None)
  Receive Date: 20041202
  Receipt Date: 20041202
  Transmission Date: 20050328
  Serious: Yes (Hospitalization)
  Sender: FDA-Public Use
  Company Number: None

PATIENT
  Sex: Male
  Weight: 124.6 kg

DRUGS (12)
  1. GEMZAR [Suspect]
     Indication: NEURILEMMOMA
     Dosage: 1800  IV INTRAVENOUS
     Route: 042
     Dates: start: 20041021, end: 20041117
  2. WARFARIN SODIUM [Concomitant]
  3. ALLOPURINOL [Concomitant]
  4. FAMOTIDINE [Concomitant]
  5. NEURONTIN [Concomitant]
  6. OXYCODONE HCL [Concomitant]
  7. ROXICODONE [Concomitant]
  8. VICODIN [Concomitant]
  9. COLACE [Concomitant]
  10. BENZONATATE [Concomitant]
  11. IRON SULFATETHIAMIN COMPOUND TAB [Concomitant]
  12. HEPARIN [Concomitant]

REACTIONS (8)
  - ANAEMIA [None]
  - CONSTIPATION [None]
  - DISEASE PROGRESSION [None]
  - DYSPEPSIA [None]
  - GOUT [None]
  - NUCLEAR MAGNETIC RESONANCE IMAGING ABNORMAL [None]
  - PAIN [None]
  - VENA CAVA THROMBOSIS [None]
